FAERS Safety Report 9272051 (Version 2)
Quarter: 2013Q2

REPORT INFORMATION
  Report Type: Spontaneous
  Country: JP (occurrence: JP)
  Receive Date: 20130506
  Receipt Date: 20130515
  Transmission Date: 20140414
  Serious: Yes (Hospitalization)
  Sender: FDA-Public Use
  Company Number: JP-UCBSA-084987

PATIENT
  Age: 19 Year
  Sex: Male
  Weight: 23 kg

DRUGS (4)
  1. E KEPPRA [Suspect]
     Indication: EPILEPSY
     Route: 048
     Dates: start: 20130402, end: 20130408
  2. E KEPPRA [Suspect]
     Indication: EPILEPSY
     Route: 048
     Dates: start: 20130409, end: 20130422
  3. L-CARTIN [Concomitant]
     Indication: PROPHYLAXIS
     Dosage: DAILY DOSE: 900 MG
     Route: 048
     Dates: start: 20111213
  4. SELENICA-R [Concomitant]
     Indication: EPILEPSY
     Dosage: DAILY DOSE: 150 MG
     Route: 048
     Dates: start: 199311

REACTIONS (1)
  - Urinary retention [Recovering/Resolving]
